FAERS Safety Report 8114111-0 (Version None)
Quarter: 2012Q1

REPORT INFORMATION
  Report Type: 
  Country: None (occurrence: None)
  Receive Date: 20120204
  Receipt Date: 20120125
  Transmission Date: 20120608
  Serious: Yes (Other)
  Sender: FDA-Public Use
  Company Number: US-ASTRAZENECA-2012SE01047

PATIENT
  Age: 47 Year
  Sex: Female

DRUGS (7)
  1. INDERAL [Concomitant]
     Dosage: 18
  2. VASERETIC [Concomitant]
     Dosage: 10/25
  3. PRILOSEC [Suspect]
     Route: 048
  4. NEXIUM [Suspect]
     Route: 048
  5. LORTAB [Concomitant]
     Dosage: 10
  6. VALIUM [Concomitant]
     Dosage: 5
  7. PHENERGAN [Concomitant]
     Dosage: 25

REACTIONS (4)
  - OESOPHAGEAL PERFORATION [None]
  - GASTROOESOPHAGEAL REFLUX DISEASE [None]
  - DRUG INEFFECTIVE [None]
  - DRUG DOSE OMISSION [None]
